FAERS Safety Report 6122175-9 (Version None)
Quarter: 2009Q1

REPORT INFORMATION
  Report Type: 
  Country: None (occurrence: None)
  Receive Date: 20090318
  Receipt Date: 20090316
  Transmission Date: 20090719
  Serious: No
  Sender: FDA-Public Use
  Company Number: US-JNJFOC-20090304166

PATIENT
  Sex: Female
  Weight: 94.8 kg

DRUGS (2)
  1. FENTANYL TRANSDERMAL SYSTEM [Suspect]
     Indication: FIBROMYALGIA
     Route: 062
  2. UNSPECIFIED MEDICATIONS [Concomitant]
     Route: 065

REACTIONS (4)
  - APPLICATION SITE PRURITUS [None]
  - APPLICATION SITE RASH [None]
  - PAIN [None]
  - WRONG TECHNIQUE IN DRUG USAGE PROCESS [None]
